FAERS Safety Report 7111463-5 (Version None)
Quarter: 2010Q4

REPORT INFORMATION
  Report Type: 
  Country: None (occurrence: None)
  Receive Date: 20101118
  Receipt Date: 20100408
  Transmission Date: 20110411
  Serious: Yes (Other)
  Sender: FDA-Public Use
  Company Number: US-PFIZER INC-2010045449

PATIENT
  Sex: Female
  Weight: 108 kg

DRUGS (5)
  1. ZYVOX [Suspect]
     Indication: INFECTION
     Dosage: 600 MG, 2X/DAY
     Route: 048
     Dates: start: 20100315, end: 20100301
  2. HYDROCHLOROTHIAZIDE [Concomitant]
     Dosage: UNK
  3. SIMVASTATIN [Concomitant]
     Dosage: UNK
  4. AMLODIPINE [Concomitant]
     Dosage: 5 MG, UNK
  5. METOPROLOL [Concomitant]
     Dosage: 50 MG, UNK

REACTIONS (3)
  - FUNGAL INFECTION [None]
  - PRURITUS [None]
  - URTICARIA [None]
